FAERS Safety Report 10215982 (Version 1)
Quarter: 2014Q2

REPORT INFORMATION
  Report Type: Spontaneous
  Country: DE (occurrence: DE)
  Receive Date: 20140604
  Receipt Date: 20140604
  Transmission Date: 20141212
  Serious: Yes (Death, Other)
  Sender: FDA-Public Use
  Company Number: DE-RANBAXY-2014RR-81834

PATIENT
  Age: 1 Day
  Sex: Male

DRUGS (3)
  1. SERTRALINE [Suspect]
     Indication: BIPOLAR DISORDER
     Dosage: 50 MG, DAILY, DURING GESTATIONAL WEEKS 11.4-34.2
     Route: 064
     Dates: start: 20130304, end: 20130810
  2. SEROQUEL PROLONG [Suspect]
     Indication: BIPOLAR DISORDER
     Dosage: 150 MG/DAY, THE DOSE WAS REDUCED TO 50 MG/DAY AT SIX MONTH
     Route: 064
     Dates: start: 20121213, end: 20130810
  3. FEMIBION SCHWANGERSCHAFT [Concomitant]
     Indication: PROPHYLAXIS OF NEURAL TUBE DEFECT
     Dosage: 0.8 MG/DAY, DOSE REDUCED TO 0.4 MG/DAY FROM THE SECOND TRIMESTER
     Route: 064
     Dates: start: 20130115

REACTIONS (2)
  - Vena cava thrombosis [Not Recovered/Not Resolved]
  - Renal vein thrombosis [Not Recovered/Not Resolved]
